FAERS Safety Report 21114588 (Version 2)
Quarter: 2022Q3

REPORT INFORMATION
  Report Type: Report from Study
  Country: GB (occurrence: GB)
  Receive Date: 20220721
  Receipt Date: 20220729
  Transmission Date: 20221027
  Serious: Yes (Death, Life-Threatening, Hospitalization)
  Sender: FDA-Public Use
  Company Number: GB-JNJFOC-20220721730

PATIENT
  Age: 74 Year
  Sex: Male
  Weight: 120.5 kg

DRUGS (14)
  1. DARATUMUMAB [Suspect]
     Active Substance: DARATUMUMAB
     Indication: Plasma cell myeloma
     Route: 058
     Dates: start: 20220606, end: 20220606
  2. APIXABAN [Concomitant]
     Active Substance: APIXABAN
     Indication: Atrial fibrillation
     Route: 048
     Dates: start: 20191201
  3. CHLORPHENIRAMINE [Concomitant]
     Active Substance: CHLORPHENIRAMINE
     Indication: Chills
     Route: 042
     Dates: start: 20220606, end: 20220606
  4. OXYGEN [Concomitant]
     Active Substance: OXYGEN
     Indication: Chills
     Route: 055
     Dates: start: 20220606, end: 20220606
  5. OXYGEN [Concomitant]
     Active Substance: OXYGEN
     Route: 055
     Dates: start: 20220606, end: 20220606
  6. HYDROCORTISONE [Concomitant]
     Active Substance: HYDROCORTISONE
     Indication: Chills
     Route: 042
     Dates: start: 20220606, end: 20220606
  7. BISOPROLOL [Concomitant]
     Active Substance: BISOPROLOL
     Indication: Tachycardia
     Route: 048
     Dates: start: 20220606, end: 20220607
  8. PIPERACILLIN SODIUM\TAZOBACTAM SODIUM [Concomitant]
     Active Substance: PIPERACILLIN SODIUM\TAZOBACTAM SODIUM
     Indication: Chills
     Route: 042
     Dates: start: 20220606, end: 20220607
  9. ACYCLOVIR [Concomitant]
     Active Substance: ACYCLOVIR
     Indication: Antiviral prophylaxis
     Route: 048
     Dates: start: 20220606, end: 20220608
  10. COTRIMOXAZOLE [Concomitant]
     Active Substance: SULFAMETHOXAZOLE\TRIMETHOPRIM
     Indication: Antibiotic prophylaxis
     Route: 048
     Dates: start: 20220606, end: 20220608
  11. INSULIN HUMAN ACTRAPID [Concomitant]
     Indication: Hyperkalaemia
     Dosage: 10
     Route: 042
     Dates: start: 20220607, end: 20220607
  12. GLUCOSE 20% BRAUN [Concomitant]
     Indication: Hyperkalaemia
     Route: 042
     Dates: start: 20220607, end: 20220608
  13. SODIUM CHLORIDE [Concomitant]
     Active Substance: SODIUM CHLORIDE
     Indication: Blood creatine increased
     Route: 042
     Dates: start: 20220606, end: 20220607
  14. OMEPRAZOLE [Concomitant]
     Active Substance: OMEPRAZOLE
     Indication: Haemorrhage prophylaxis
     Route: 048
     Dates: start: 20220606, end: 20220608

REACTIONS (3)
  - Tumour lysis syndrome [Fatal]
  - Hepatic haemorrhage [Fatal]
  - Multiple organ dysfunction syndrome [Fatal]

NARRATIVE: CASE EVENT DATE: 20220607
